FAERS Safety Report 26017792 (Version 1)
Quarter: 2025Q4

REPORT INFORMATION
  Report Type: Spontaneous
  Country: CN (occurrence: CN)
  Receive Date: 20251110
  Receipt Date: 20251110
  Transmission Date: 20260118
  Serious: Yes (Hospitalization)
  Sender: ACCORD
  Company Number: CN-Accord-511828

PATIENT
  Age: 62 Year
  Sex: Male

DRUGS (3)
  1. MYCOPHENOLATE MOFETIL [Suspect]
     Active Substance: MYCOPHENOLATE MOFETIL
     Indication: Immunosuppressant drug therapy
  2. TACROLIMUS [Suspect]
     Active Substance: TACROLIMUS
     Indication: Immunosuppressant drug therapy
  3. BENIDIPINE [Concomitant]
     Active Substance: BENIDIPINE
     Indication: Hypertension
     Route: 048

REACTIONS (3)
  - Small intestine adenocarcinoma [Recovered/Resolved]
  - Metastases to abdominal cavity [Recovered/Resolved]
  - Metastases to pelvis [Recovered/Resolved]
